FAERS Safety Report 17582217 (Version 1)
Quarter: 2020Q1

REPORT INFORMATION
  Report Type: Spontaneous
  Country: US (occurrence: US)
  Receive Date: 20200325
  Receipt Date: 20200325
  Transmission Date: 20200409
  Serious: Yes (Other)
  Sender: FDA-Public Use
  Company Number: US-NAPPMUNDI-USA-2020-0150569

PATIENT
  Sex: Male

DRUGS (5)
  1. OXYCONTIN [Suspect]
     Active Substance: OXYCODONE HYDROCHLORIDE
     Dosage: 40 MG, BID
     Route: 048
  2. ACETYLSALICYLIC ACID W/CODEINE [Suspect]
     Active Substance: ASPIRIN\CODEINE
     Indication: PRODUCT USED FOR UNKNOWN INDICATION
     Route: 048
  3. OXYCONTIN [Suspect]
     Active Substance: OXYCODONE HYDROCHLORIDE
     Dosage: 60 MG, BID
     Route: 048
  4. OXYCONTIN [Suspect]
     Active Substance: OXYCODONE HYDROCHLORIDE
     Indication: PAIN
     Dosage: 20 MG, BID
     Route: 048
  5. OXYCODONE HYDROCHLORIDE. [Suspect]
     Active Substance: OXYCODONE HYDROCHLORIDE
     Indication: BREAKTHROUGH PAIN
     Dosage: 15 MG, SIX TABLETS DAILY
     Route: 048

REACTIONS (11)
  - Drug withdrawal syndrome [Unknown]
  - Scar [Unknown]
  - Constipation [Unknown]
  - Fall [Recovered/Resolved]
  - Drug tolerance decreased [Recovered/Resolved]
  - Rib fracture [Unknown]
  - Mania [Unknown]
  - Pneumothorax [Unknown]
  - Dementia [Unknown]
  - Epidural injection [Unknown]
  - Judgement impaired [Unknown]
